FAERS Safety Report 9551739 (Version 1)
Quarter: 2013Q3

REPORT INFORMATION
  Report Type: Spontaneous
  Country: US (occurrence: None)
  Receive Date: 20130724
  Receipt Date: 20130724
  Transmission Date: 20140515
  Serious: Yes (Hospitalization)
  Sender: FDA-Public Use
  Company Number: PHEH2012US017007

PATIENT
  Age: 48 Year
  Sex: Female

DRUGS (7)
  1. GLEEVEC (IMATINIB) UNKNOWN [Suspect]
     Indication: GASTROINTESTINAL STROMAL TUMOUR
     Route: 048
     Dates: start: 20120603
  2. MOBIC [Suspect]
  3. FLONASE (FLUTICASONE PROPIONATE) [Concomitant]
  4. VENLAFAXINE HYDROCHLORIDE [Concomitant]
  5. FERROUS SULFATE [Concomitant]
  6. MULTIVITAMIN (VITAMINS NOS) [Concomitant]
  7. ZOFRAN (ONDANSETRON HYDROCHLORIDE) [Concomitant]

REACTIONS (5)
  - Haemorrhage [None]
  - Gastric mucosa erythema [None]
  - Melaena [None]
  - Skin discolouration [None]
  - Headache [None]
